FAERS Safety Report 5912933-5 (Version None)
Quarter: 2008Q4

REPORT INFORMATION
  Report Type: 
  Country: None (occurrence: None)
  Receive Date: 20081008
  Receipt Date: 20080926
  Transmission Date: 20090506
  Serious: Yes (Other)
  Sender: FDA-Public Use
  Company Number: US-PFIZER INC-2008060615

PATIENT
  Sex: Male
  Weight: 72.6 kg

DRUGS (1)
  1. LYRICA [Suspect]
     Indication: NERVE INJURY
     Route: 048
     Dates: start: 20080627, end: 20080713

REACTIONS (5)
  - DISORIENTATION [None]
  - DIZZINESS [None]
  - MEMORY IMPAIRMENT [None]
  - PANIC ATTACK [None]
  - PRESYNCOPE [None]
